FAERS Safety Report 21433931 (Version 1)
Quarter: 2022Q4

REPORT INFORMATION
  Report Type: Spontaneous
  Country: US (occurrence: US)
  Receive Date: 20221010
  Receipt Date: 20221010
  Transmission Date: 20230113
  Serious: Yes (Hospitalization, Disabling, Other)
  Sender: FDA-Public Use
  Company Number: US-MERCK-1204USA04273

PATIENT
  Sex: Female
  Weight: 74.83 kg

DRUGS (7)
  1. FOSAMAX [Suspect]
     Active Substance: ALENDRONATE SODIUM
     Indication: Osteoporosis
     Dosage: 70 MG, QW
     Route: 048
     Dates: start: 200108, end: 200901
  2. FOSAMAX [Suspect]
     Active Substance: ALENDRONATE SODIUM
     Dosage: TAKE 1 TABLET BY MOUTH EACH WEEK
     Route: 048
  3. FOSAMAX [Suspect]
     Active Substance: ALENDRONATE SODIUM
     Dosage: TAKE 1 TABLET EACH WEEK ON THE SAME MORNING OF EACH WEEK WITH A FULL GLASS OF PLAIN
     Route: 048
  4. FOSAMAX [Suspect]
     Active Substance: ALENDRONATE SODIUM
     Dosage: TAKE 1 TABLET ON THE SAME DAY EACH WEEK WITH 8 OZ OF WATER. DON^T SIT OR OTHER MEDS.
     Route: 048
  5. FOSAMAX [Suspect]
     Active Substance: ALENDRONATE SODIUM
     Dosage: TAKE 1 TABLET THE SAME DAY OF EACH WEEK. TAKE WITH 8 OZ O PLAIN WATER. NO FOOD AND SIT UP
     Route: 048
  6. ALENDRONATE SODIUM [Suspect]
     Active Substance: ALENDRONATE SODIUM
     Dosage: 70 MG, QW
     Route: 048
  7. ALENDRONATE SODIUM [Suspect]
     Active Substance: ALENDRONATE SODIUM
     Dosage: TAKE 1 TABLET THE SAME DAY OF EACH WEEK. TAKE WITH 8 OZ PLAIN WATER. NO FOOD AND SIT UP
     Route: 048

REACTIONS (41)
  - Femur fracture [Unknown]
  - Hip arthroplasty [Unknown]
  - Mastectomy [Unknown]
  - Invasive ductal breast carcinoma [Unknown]
  - Pelvic fracture [Unknown]
  - Fracture debridement [Recovering/Resolving]
  - Tenolysis [Unknown]
  - Tooth disorder [Unknown]
  - Tooth disorder [Unknown]
  - Tooth disorder [Unknown]
  - Tooth disorder [Unknown]
  - Gingival pain [Unknown]
  - Gingival pain [Unknown]
  - Gingival pain [Unknown]
  - Rheumatoid arthritis [Unknown]
  - Eye operation [Unknown]
  - Infection [Unknown]
  - Wrist fracture [Unknown]
  - Animal bite [Recovered/Resolved]
  - Throat irritation [Unknown]
  - Weight decreased [Unknown]
  - Rheumatoid arthritis [Unknown]
  - Foot fracture [Unknown]
  - Osteoarthritis [Unknown]
  - Fracture nonunion [Unknown]
  - Tenosynovitis stenosans [Recovering/Resolving]
  - Arthritis [Unknown]
  - Hypertension [Unknown]
  - Osteoarthritis [Unknown]
  - Asthenia [Unknown]
  - Gastrooesophageal reflux disease [Unknown]
  - Back pain [Unknown]
  - Urinary tract infection [Recovered/Resolved]
  - Hyperlipidaemia [Unknown]
  - Psoriasis [Unknown]
  - Cardiac murmur [Unknown]
  - Obesity [Unknown]
  - Tenosynovitis [Recovering/Resolving]
  - Cellulitis [Recovering/Resolving]
  - Clostridium difficile colitis [Unknown]
  - Osteopenia [Unknown]

NARRATIVE: CASE EVENT DATE: 20020101
